FAERS Safety Report 18668665 (Version 3)
Quarter: 2021Q1

REPORT INFORMATION
  Report Type: Spontaneous
  Country: FR (occurrence: FR)
  Receive Date: 20201228
  Receipt Date: 20210205
  Transmission Date: 20210419
  Serious: Yes (Hospitalization, Other)
  Sender: FDA-Public Use
  Company Number: FR-GLAXOSMITHKLINE-FR2020EME254276

PATIENT
  Age: 28 Year
  Sex: Female

DRUGS (4)
  1. LAMICTAL [Suspect]
     Active Substance: LAMOTRIGINE
     Dosage: 125 MG, BID
     Route: 065
     Dates: end: 20210106
  2. LAMICTAL [Suspect]
     Active Substance: LAMOTRIGINE
     Indication: BIPOLAR DISORDER
     Dosage: 25 MG
     Dates: start: 20201215
  3. LAMICTAL [Suspect]
     Active Substance: LAMOTRIGINE
     Dosage: 250 MG, QD
  4. LAMOTRIGINE. [Suspect]
     Active Substance: LAMOTRIGINE
     Indication: PRODUCT USED FOR UNKNOWN INDICATION
     Dosage: UNK
     Dates: start: 20210107

REACTIONS (14)
  - Loss of consciousness [Recovering/Resolving]
  - Epilepsy [Recovered/Resolved]
  - Seizure [Recovering/Resolving]
  - Tachycardia [Recovering/Resolving]
  - Acne [Unknown]
  - Visual impairment [Unknown]
  - Palpitations [Unknown]
  - Muscle contractions involuntary [Unknown]
  - Product complaint [Unknown]
  - Visual impairment [Unknown]
  - Headache [Recovered/Resolved]
  - Monoplegia [Recovering/Resolving]
  - Abnormal behaviour [Unknown]
  - Product odour abnormal [Unknown]

NARRATIVE: CASE EVENT DATE: 2020
